FAERS Safety Report 22537555 (Version 2)
Quarter: 2023Q2

REPORT INFORMATION
  Report Type: Spontaneous
  Country: KR (occurrence: KR)
  Receive Date: 20230608
  Receipt Date: 20230622
  Transmission Date: 20230722
  Serious: Yes (Death, Hospitalization)
  Sender: FDA-Public Use
  Company Number: KR-TEVA-2023-KR-2894215

PATIENT
  Age: 20 Year
  Sex: Male

DRUGS (2)
  1. DOXORUBICIN [Suspect]
     Active Substance: DOXORUBICIN
     Indication: Synovial sarcoma
     Dosage: RECEIVED EIGHT CYCLES
     Route: 065
  2. OLARATUMAB [Concomitant]
     Active Substance: OLARATUMAB
     Indication: Synovial sarcoma
     Route: 065

REACTIONS (4)
  - Cerebral infarction [Fatal]
  - Ischaemic stroke [Fatal]
  - Cardiomyopathy [Fatal]
  - Cardiac failure [Fatal]
